FAERS Safety Report 8128722-X (Version None)
Quarter: 2012Q1

REPORT INFORMATION
  Report Type: 
  Country: None (occurrence: None)
  Receive Date: 20120210
  Receipt Date: 20110308
  Transmission Date: 20120608
  Serious: Yes (Hospitalization)
  Sender: FDA-Public Use
  Company Number: US-BRISTOL-MYERS SQUIBB COMPANY-15532880

PATIENT
  Sex: Female

DRUGS (2)
  1. ORENCIA [Suspect]
     Dates: start: 20100301, end: 20100801
  2. PREDNISONE TAB [Concomitant]
     Dosage: REDUCED TO 5MG

REACTIONS (2)
  - DIVERTICULITIS [None]
  - DRUG INEFFECTIVE [None]
